FAERS Safety Report 7831992-6 (Version None)
Quarter: 2011Q4

REPORT INFORMATION
  Report Type: 
  Country: None (occurrence: None)
  Receive Date: 20111021
  Receipt Date: 20111010
  Transmission Date: 20120403
  Serious: Yes (Hospitalization)
  Sender: FDA-Public Use
  Company Number: CA-ELI_LILLY_AND_COMPANY-CA201110002710

PATIENT
  Age: 74 Year
  Sex: Female

DRUGS (12)
  1. SENOKOT [Concomitant]
  2. METHOTREXATE [Concomitant]
  3. VITAMIN B-12 [Concomitant]
  4. METOPROLOL TARTRATE [Concomitant]
  5. SOFLAX [Concomitant]
  6. WARFARIN SODIUM [Concomitant]
  7. FORTEO [Suspect]
     Indication: OSTEOPOROSIS
     Dosage: 20 UG, QD
     Route: 058
     Dates: start: 20110606
  8. FUROSEMIDE [Concomitant]
  9. FOLIC ACID [Concomitant]
  10. VITAMIN D [Concomitant]
  11. METFORMIN HCL [Concomitant]
  12. CANDESARTAN CILEXETIL [Concomitant]

REACTIONS (3)
  - SPINAL FRACTURE [None]
  - LUNG DISORDER [None]
  - PAIN [None]
